FAERS Safety Report 23777948 (Version 2)
Quarter: 2024Q3

REPORT INFORMATION
  Report Type: Spontaneous
  Country: JP (occurrence: JP)
  Receive Date: 20240424
  Receipt Date: 20240722
  Transmission Date: 20241017
  Serious: Yes (Hospitalization, Other)
  Sender: BRISTOL MYERS SQUIBB
  Company Number: JP-ONO-2024JP008754

PATIENT

DRUGS (1)
  1. OPDIVO [Suspect]
     Active Substance: NIVOLUMAB
     Indication: Non-small cell lung cancer
     Route: 041
     Dates: start: 202311

REACTIONS (4)
  - Pneumonia [Recovered/Resolved]
  - Paralysis recurrent laryngeal nerve [Recovered/Resolved]
  - Encephalitis [Recovered/Resolved]
  - Dysphagia [Recovered/Resolved]
